FAERS Safety Report 7467910-2 (Version None)
Quarter: 2011Q2

REPORT INFORMATION
  Report Type: 
  Country: None (occurrence: None)
  Receive Date: 20110509
  Receipt Date: 20110215
  Transmission Date: 20111010
  Serious: No
  Sender: FDA-Public Use
  Company Number: US-ALEXION-A201100194

PATIENT
  Sex: Male

DRUGS (9)
  1. IRON [Concomitant]
     Dosage: UNK, QD, ORAL
     Route: 048
  2. PRILOSEC [Concomitant]
     Indication: REFLUX OESOPHAGITIS
     Dosage: 20 MG, QD
     Route: 048
  3. PRAVACHOL [Concomitant]
     Indication: BLOOD CHOLESTEROL INCREASED
     Dosage: 1, QD, ORAL
     Route: 048
  4. TENORMIN [Concomitant]
     Indication: HYPERTENSION
     Dosage: 50 MG, QD
     Route: 048
  5. SOLIRIS [Suspect]
     Indication: PAROXYSMAL NOCTURNAL HAEMOGLOBINURIA
     Dosage: 900 MG, Q2W
     Route: 042
     Dates: start: 20070621
  6. ASPIRIN [Concomitant]
     Indication: CARDIOVASCULAR EVENT PROPHYLAXIS
     Dosage: 81 MG, QD
     Route: 048
  7. COUMADIN [Concomitant]
     Dosage: UNK, QD, ORAL
     Route: 048
  8. ZESTRIL [Concomitant]
     Indication: HYPERTENSION
     Dosage: 50 MG, QD
     Route: 048
  9. FOLIC ACID [Concomitant]
     Dosage: UNK, QD, ORAL
     Route: 048

REACTIONS (3)
  - MALAISE [None]
  - ASTHENIA [None]
  - NAUSEA [None]
